FAERS Safety Report 9225747 (Version 1)
Quarter: 2013Q2

REPORT INFORMATION
  Report Type: Spontaneous
  Country: IT (occurrence: IT)
  Receive Date: 20130411
  Receipt Date: 20130411
  Transmission Date: 20140414
  Serious: Yes (Other)
  Sender: FDA-Public Use
  Company Number: IT-GLAXOSMITHKLINE-B0882617A

PATIENT
  Age: 68 Year
  Sex: Female

DRUGS (6)
  1. NEOTIGASON [Suspect]
     Indication: PSORIASIS
     Dosage: 25MG PER DAY
     Route: 048
     Dates: start: 20130322, end: 20130324
  2. LANSOPRAZOLE [Concomitant]
  3. TORVAST [Concomitant]
  4. LYRICA [Concomitant]
  5. EUTIROX [Concomitant]
  6. FOSTER [Concomitant]

REACTIONS (1)
  - Syncope [Recovered/Resolved]
